FAERS Safety Report 7909415-8 (Version None)
Quarter: 2011Q4

REPORT INFORMATION
  Report Type: 
  Country: None (occurrence: None)
  Receive Date: 20111111
  Receipt Date: 20111102
  Transmission Date: 20120403
  Serious: Yes (Hospitalization)
  Sender: FDA-Public Use
  Company Number: US-ASTRAZENECA-2011SE66237

PATIENT
  Age: 31428 Day
  Sex: Male
  Weight: 73.9 kg

DRUGS (16)
  1. FLOMAX [Concomitant]
  2. CADUET [Suspect]
     Indication: HYPERTENSION
     Dosage: 5/40 MG DAILY
     Route: 048
     Dates: start: 20091001
  3. FISH OIL [Concomitant]
  4. ENALAPRIL MALEATE [Concomitant]
  5. PROTONIX [Concomitant]
  6. STUDY PROCEDURE [Suspect]
     Indication: HYPERTENSION
     Route: 065
  7. ASPIRIN [Concomitant]
  8. PROZAC [Concomitant]
  9. INSULIN [Concomitant]
  10. LEVAQUIN [Concomitant]
  11. METFORMIN HCL [Concomitant]
  12. CADUET [Suspect]
     Indication: HYPERLIPIDAEMIA
     Dosage: 5/40 MG DAILY
     Route: 048
     Dates: start: 20091001
  13. LEVOTHYROXINE SODIUM [Concomitant]
  14. ATACAND [Suspect]
     Indication: HYPERTENSION
     Route: 048
     Dates: start: 20060509
  15. MULTI-VITAMINS [Concomitant]
  16. BISOPROLOL FUMARATE AND HYDROCHLOROTHIAZIDE [Concomitant]

REACTIONS (2)
  - FALL [None]
  - ORTHOSTATIC HYPOTENSION [None]
